FAERS Safety Report 26020098 (Version 1)
Quarter: 2025Q4

REPORT INFORMATION
  Report Type: Spontaneous
  Country: US (occurrence: US)
  Receive Date: 20251110
  Receipt Date: 20251110
  Transmission Date: 20260119
  Serious: No
  Sender: DIFGEN PHARMACEUTICALS LLC
  Company Number: US-Difgen-012293

PATIENT
  Sex: Female

DRUGS (1)
  1. NICOTINE [Suspect]
     Active Substance: NICOTINE
     Indication: Product used for unknown indication
     Route: 062
     Dates: start: 20251103

REACTIONS (4)
  - Application site irritation [Unknown]
  - Product odour abnormal [Unknown]
  - Product packaging issue [Unknown]
  - Product physical issue [Unknown]
